FAERS Safety Report 11155688 (Version 7)
Quarter: 2016Q1

REPORT INFORMATION
  Report Type: Spontaneous
  Country: BR (occurrence: BR)
  Receive Date: 20150602
  Receipt Date: 20160208
  Transmission Date: 20160525
  Serious: Yes (Hospitalization, Other)
  Sender: FDA-Public Use
  Company Number: BR-SA-2015SA073398

PATIENT
  Sex: Female

DRUGS (11)
  1. AAS [Concomitant]
     Active Substance: ASPIRIN
  2. ACITRETIN. [Suspect]
     Active Substance: ACITRETIN
     Indication: PSORIASIS
     Route: 065
  3. CLOPIDOGREL [Concomitant]
     Active Substance: CLOPIDOGREL BISULFATE
     Dosage: STRENGTH: 75MG
  4. HUMALOG [Suspect]
     Active Substance: INSULIN LISPRO
     Indication: DIABETES MELLITUS
     Dosage: FEQUENCY: SEVERAL TIMES A DAY
     Route: 065
  5. LOSARTAN. [Concomitant]
     Active Substance: LOSARTAN
     Indication: HYPERTENSION
  6. HYDROCHLOROTHIAZIDE. [Concomitant]
     Active Substance: HYDROCHLOROTHIAZIDE
     Indication: HYPERTENSION
  7. LANTUS [Suspect]
     Active Substance: INSULIN GLARGINE
     Indication: DIABETES MELLITUS
     Route: 065
     Dates: start: 201412
  8. VITAMINS NOS [Concomitant]
     Active Substance: VITAMINS
  9. SIMVASTATIN. [Concomitant]
     Active Substance: SIMVASTATIN
  10. GLIBENCLAMIDE [Concomitant]
     Active Substance: GLYBURIDE
  11. METFORMIN HYDROCHLORIDE. [Concomitant]
     Active Substance: METFORMIN HYDROCHLORIDE

REACTIONS (29)
  - Pain [Recovered/Resolved]
  - Blindness unilateral [Not Recovered/Not Resolved]
  - Skin infection [Recovering/Resolving]
  - Skin exfoliation [Unknown]
  - Vision blurred [Unknown]
  - Cataract [Unknown]
  - Retinal detachment [Unknown]
  - Poisoning [Not Recovered/Not Resolved]
  - Liver disorder [Recovered/Resolved]
  - Psoriasis [Recovering/Resolving]
  - Pneumonia [Recovered/Resolved]
  - Blood glucose abnormal [Unknown]
  - Visual acuity reduced [Not Recovered/Not Resolved]
  - Abdominal pain upper [Not Recovered/Not Resolved]
  - Blood pressure increased [Recovered/Resolved]
  - Eye irritation [Unknown]
  - Eye pain [Unknown]
  - Drug ineffective [Unknown]
  - Dengue fever [Recovered/Resolved]
  - Eye haemorrhage [Unknown]
  - Asthenia [Not Recovered/Not Resolved]
  - Localised infection [Recovering/Resolving]
  - Wound [Recovering/Resolving]
  - Abasia [Not Recovered/Not Resolved]
  - Hypoglycaemia [Unknown]
  - Back pain [Recovered/Resolved]
  - Anaemia [Recovered/Resolved]
  - Onychoclasis [Recovering/Resolving]
  - Blood glucose increased [Unknown]

NARRATIVE: CASE EVENT DATE: 201506
